FAERS Safety Report 9481943 (Version 2)
Quarter: 2014Q1

REPORT INFORMATION
  Report Type: Spontaneous
  Country: US (occurrence: US)
  Receive Date: 20130828
  Receipt Date: 20140224
  Transmission Date: 20141002
  Serious: No
  Sender: FDA-Public Use
  Company Number: US-PFIZER INC-2013244312

PATIENT
  Age: 61 Year
  Sex: Male

DRUGS (4)
  1. SUTENT [Suspect]
     Indication: RENAL CANCER
     Dosage: 50 MG, 1X/DAY
     Route: 048
     Dates: start: 20130419, end: 20130822
  2. COMPAZINE [Concomitant]
     Dosage: 10 MG, QD
     Route: 048
     Dates: start: 20120927
  3. FLUOXETINE [Concomitant]
     Dosage: 10 MG, QD
     Route: 048
  4. METFORMIN [Concomitant]
     Dosage: 500 MG, TID
     Route: 048

REACTIONS (2)
  - Disease progression [Not Recovered/Not Resolved]
  - Renal cancer [Unknown]
